FAERS Safety Report 16915323 (Version 2)
Quarter: 2023Q4

REPORT INFORMATION
  Report Type: Report from Study
  Country: DE (occurrence: DE)
  Receive Date: 20191014
  Receipt Date: 20231128
  Transmission Date: 20240109
  Serious: Yes (Other)
  Sender: FDA-Public Use
  Company Number: DE-AMGEN-DEUNI2019169009

PATIENT
  Age: 46 Year
  Sex: Male
  Weight: 69 kg

DRUGS (9)
  1. PANITUMUMAB [Suspect]
     Active Substance: PANITUMUMAB
     Indication: Colorectal cancer metastatic
     Dosage: 400 MILLIGRAM
     Route: 042
     Dates: start: 20180417
  2. LEUCOVORIN [Suspect]
     Active Substance: LEUCOVORIN\LEUCOVORIN CALCIUM
     Indication: Colorectal cancer metastatic
     Dosage: 750 MILLIGRAM
     Route: 065
     Dates: start: 20180417
  3. FLUOROURACIL [Suspect]
     Active Substance: FLUOROURACIL
     Indication: Colorectal cancer metastatic
     Dosage: 750 MILLIGRAM
     Route: 040
     Dates: start: 20180417, end: 20180417
  4. FLUOROURACIL [Suspect]
     Active Substance: FLUOROURACIL
     Dosage: 4500 MILLIGRAM
     Route: 042
     Dates: start: 20180417
  5. FLUOROURACIL [Suspect]
     Active Substance: FLUOROURACIL
     Dosage: 785 MILLIGRAM
     Route: 040
     Dates: start: 20180430
  6. OXALIPLATIN [Suspect]
     Active Substance: OXALIPLATIN
     Indication: Colorectal cancer metastatic
     Dosage: 180 MILLIGRAM
     Route: 065
     Dates: start: 20180417
  7. DEXAMETHASONE [Concomitant]
     Active Substance: DEXAMETHASONE
     Dosage: 16 MILLIGRAM
     Route: 048
     Dates: start: 20180417
  8. GRANISETRON RATIOPHARM [Concomitant]
     Dosage: 2 MILLIGRAM
     Route: 048
     Dates: start: 20180417
  9. DOXYCYCLINE [Concomitant]
     Active Substance: DOXYCYCLINE
     Indication: Skin reaction
     Dosage: 100 MG DAILY, AND 100 MG BID
     Route: 048
     Dates: start: 20180430, end: 20200109

REACTIONS (1)
  - Neuropathy peripheral [Unknown]

NARRATIVE: CASE EVENT DATE: 20180605
